FAERS Safety Report 10055628 (Version 2)
Quarter: 2014Q2

REPORT INFORMATION
  Report Type: Spontaneous
  Country: US (occurrence: US)
  Receive Date: 20140403
  Receipt Date: 20140403
  Transmission Date: 20141212
  Serious: Yes (Other)
  Sender: FDA-Public Use
  Company Number: US-DRREDDYS-USA/USA/14/0039218

PATIENT
  Age: 83 Year
  Sex: Female
  Weight: 68.03 kg

DRUGS (2)
  1. CIPROFLOXACIN 250 MG [Suspect]
     Indication: CYSTITIS
     Route: 048
     Dates: start: 20140313, end: 20140318
  2. BABY ASPIRIN [Concomitant]
     Indication: PRODUCT USED FOR UNKNOWN INDICATION
     Dosage: USED FOR YEARS
     Route: 065

REACTIONS (1)
  - Gout [Not Recovered/Not Resolved]
